FAERS Safety Report 8375298-8 (Version None)
Quarter: 2012Q2

REPORT INFORMATION
  Report Type: 
  Country: None (occurrence: None)
  Receive Date: 20120522
  Receipt Date: 20120516
  Transmission Date: 20120825
  Serious: No
  Sender: FDA-Public Use
  Company Number: US-BIOGENIDEC-2012BI005429

PATIENT
  Sex: Female

DRUGS (1)
  1. TYSABRI [Suspect]
     Indication: MULTIPLE SCLEROSIS
     Route: 042
     Dates: start: 20111102

REACTIONS (12)
  - FALL [None]
  - NAUSEA [None]
  - LACERATION [None]
  - DYSURIA [None]
  - FATIGUE [None]
  - BALANCE DISORDER [None]
  - BLOOD COUNT ABNORMAL [None]
  - MULTIPLE SCLEROSIS RELAPSE [None]
  - HEADACHE [None]
  - WHITE BLOOD CELL COUNT INCREASED [None]
  - HYPOAESTHESIA [None]
  - LOSS OF CONTROL OF LEGS [None]
